FAERS Safety Report 20145897 (Version 1)
Quarter: 2021Q4

REPORT INFORMATION
  Report Type: Spontaneous
  Country: US (occurrence: US)
  Receive Date: 20211203
  Receipt Date: 20211203
  Transmission Date: 20220303
  Serious: Yes (Other)
  Sender: FDA-Public Use
  Company Number: US-UCBSA-2021056010

PATIENT
  Age: 23 Year
  Sex: Male

DRUGS (1)
  1. CERTOLIZUMAB PEGOL [Suspect]
     Active Substance: CERTOLIZUMAB PEGOL
     Indication: Crohn^s disease
     Dosage: UNK

REACTIONS (5)
  - Oesophageal ulcer [Recovered/Resolved]
  - Weight decreased [Unknown]
  - Aphthous ulcer [Recovered/Resolved]
  - Odynophagia [Unknown]
  - Hypophagia [Unknown]
